FAERS Safety Report 14296398 (Version 7)
Quarter: 2020Q2

REPORT INFORMATION
  Report Type: Spontaneous
  Country: US (occurrence: US)
  Receive Date: 20171218
  Receipt Date: 20200423
  Transmission Date: 20200713
  Serious: Yes (Hospitalization, Other)
  Sender: FDA-Public Use
  Company Number: US-PFIZER INC-2017536601

PATIENT
  Age: 76 Year
  Sex: Female
  Weight: 62.6 kg

DRUGS (2)
  1. ASPIRIN. [Concomitant]
     Active Substance: ASPIRIN
     Indication: BLOOD DISORDER
     Dosage: UNK
  2. LATANOPROST. [Suspect]
     Active Substance: LATANOPROST
     Indication: GLAUCOMA
     Dosage: UNK

REACTIONS (15)
  - Rib fracture [Unknown]
  - Lacrimation increased [Recovered/Resolved]
  - Photopsia [Unknown]
  - Pharyngeal swelling [Unknown]
  - Swollen tongue [Unknown]
  - Speech disorder [Unknown]
  - Dyspnoea [Unknown]
  - Lip swelling [Unknown]
  - Eye pain [Recovered/Resolved]
  - Periorbital swelling [Unknown]
  - Malaise [Unknown]
  - Drug hypersensitivity [Unknown]
  - Gait disturbance [Unknown]
  - Eye irritation [Recovered/Resolved]
  - Foreign body in eye [Recovered/Resolved]

NARRATIVE: CASE EVENT DATE: 2017
